FAERS Safety Report 20388795 (Version 5)
Quarter: 2022Q1

REPORT INFORMATION
  Report Type: Spontaneous
  Country: US (occurrence: US)
  Receive Date: 20220128
  Receipt Date: 20220303
  Transmission Date: 20220423
  Serious: Yes (Hospitalization, Disabling, Other)
  Sender: FDA-Public Use
  Company Number: US-NOVARTISPH-NVSC2022US015512

PATIENT
  Age: 19 Year
  Sex: Male
  Weight: 66 kg

DRUGS (35)
  1. KYMRIAH [Suspect]
     Active Substance: TISAGENLECLEUCEL
     Indication: Acute lymphocytic leukaemia
     Dosage: UNK UNK, ONCE/SINGLE, (2.2 E8 CART CELLS)
     Route: 042
     Dates: start: 20220121, end: 20220121
  2. DIAMOX SEQUELS [Concomitant]
     Active Substance: ACETAZOLAMIDE
     Indication: Glaucoma
     Dosage: 2 DOSAGE FORM, BID
     Route: 048
  3. DIAMOX SEQUELS [Concomitant]
     Active Substance: ACETAZOLAMIDE
     Dosage: 1000 MG (2X DAY)
     Route: 065
  4. ERGOCALCIFEROL [Concomitant]
     Active Substance: ERGOCALCIFEROL
     Indication: Hypovitaminosis
     Dosage: 1 DOSAGE FORM, QW
     Route: 048
  5. FAMOTIDINE [Concomitant]
     Active Substance: FAMOTIDINE
     Indication: Gastric ulcer
     Dosage: 1 DOSAGE FORM, Q12H
     Route: 048
  6. LEVOFLOXACIN [Concomitant]
     Active Substance: LEVOFLOXACIN
     Indication: Antimicrobial susceptibility test
     Dosage: 1 DOSAGE FORM, QD, 30 DAYS
     Route: 048
  7. LIDOCAINE [Concomitant]
     Active Substance: LIDOCAINE
     Indication: Analgesic therapy
     Dosage: PPLY TOPICALLY AS NEEDED. ON CHEST PORT PRIOR TO CHEMOTHERAPY
     Route: 065
  8. ONDANSETRON [Concomitant]
     Active Substance: ONDANSETRON
     Indication: Nausea
     Dosage: 1 DOSAGE FORM, Q8H
     Route: 048
  9. ONDANSETRON [Concomitant]
     Active Substance: ONDANSETRON
     Indication: Vomiting
  10. SERTRALINE [Concomitant]
     Active Substance: SERTRALINE HYDROCHLORIDE
     Indication: Depression
     Dosage: 2 DOSAGE FORM, QD (TAKE 1.5 TABLETS ON 12/24 (75MG) 2 TABLETS ON 12/25 (100MG)
     Route: 048
  11. TAMSULOSIN [Concomitant]
     Active Substance: TAMSULOSIN
     Indication: Benign prostatic hyperplasia
     Dosage: 1 DOSAGE FORM, BID (FOR 30 DAYS)
     Route: 065
  12. DECADRON [Concomitant]
     Active Substance: DEXAMETHASONE
     Indication: Product used for unknown indication
     Dosage: TAPERED OVER 1/26-1/29
     Route: 065
     Dates: start: 20220125
  13. METHYLPREDNISOLONE [Concomitant]
     Active Substance: METHYLPREDNISOLONE
     Indication: Product used for unknown indication
     Dosage: 1 G X1
     Route: 065
  14. DEXMEDETOMIDINE [Concomitant]
     Active Substance: DEXMEDETOMIDINE
     Indication: Product used for unknown indication
     Dosage: 0.5 MCG/KG/HR (DOSING WEIGHT), LAST RATE: 0.5 MCG/KG/HR (02/03/22 0800)
     Route: 065
  15. ZOSYN [Concomitant]
     Active Substance: PIPERACILLIN SODIUM\TAZOBACTAM SODIUM
     Indication: Rash
     Dosage: MORBILLIFORM RASH PER PEDS DERMATOLOGY
     Route: 065
  16. FENTANYL [Concomitant]
     Active Substance: FENTANYL
     Indication: Product used for unknown indication
     Dosage: 150 MCG/HR, LAST RATE: 150 MCG/HR (02/03/22 0800)
     Route: 065
  17. HEPARIN [Concomitant]
     Active Substance: HEPARIN SODIUM
     Indication: Product used for unknown indication
     Dosage: 1 UNIT/ML INFUSION, , LAST RATE: 3 ML/HR AT 02/03/22 0800
     Route: 041
  18. HEPARIN [Concomitant]
     Active Substance: HEPARIN SODIUM
     Dosage: 100 UNIT/ML INJECTION 500 UNITS INTRACATHETE
     Route: 065
  19. MIDAZOLAM [Concomitant]
     Active Substance: MIDAZOLAM
     Indication: Product used for unknown indication
     Dosage: 0.1 MG/KG/HR (DOSING WEIGHT), LAST RATE: 0.1 MG/KG/HR (02/03/22 0800)
     Route: 065
  20. SODIUM CHLORIDE [Concomitant]
     Active Substance: SODIUM CHLORIDE
     Indication: Product used for unknown indication
     Dosage: 3 ML/HR, LAST RATE: 3 ML/HR (02/02/22 1220)
     Route: 065
  21. PERIDEX [Concomitant]
     Active Substance: CHLORHEXIDINE GLUCONATE
     Indication: Product used for unknown indication
     Dosage: 15 ML (GARGLE 2X DAY)
     Route: 065
  22. PEPCID [Concomitant]
     Active Substance: FAMOTIDINE
     Indication: Product used for unknown indication
     Dosage: 20 MG, Q12H
     Route: 065
  23. DIFLUCAN [Concomitant]
     Active Substance: FLUCONAZOLE
     Indication: Product used for unknown indication
     Dosage: 400 MG, Q24H
     Route: 048
  24. KEPPRA [Concomitant]
     Active Substance: LEVETIRACETAM
     Indication: Product used for unknown indication
     Dosage: 500 MG, Q12H
     Route: 042
  25. NYSTATIN [Concomitant]
     Active Substance: NYSTATIN
     Indication: Product used for unknown indication
     Dosage: 5 ML (100000 UNIT/ML) SUSPENSION 500000 UNITS
     Route: 065
  26. ZOFRAN [Concomitant]
     Active Substance: ONDANSETRON HYDROCHLORIDE
     Indication: Product used for unknown indication
     Dosage: 8 MG, Q8H
     Route: 042
  27. ZOFRAN [Concomitant]
     Active Substance: ONDANSETRON HYDROCHLORIDE
     Dosage: 8 MG IN D5W 8 ML PRN
     Route: 042
  28. ZOLOFT [Concomitant]
     Active Substance: SERTRALINE HYDROCHLORIDE
     Indication: Product used for unknown indication
     Dosage: 100 MG
     Route: 048
  29. ATARAX [Concomitant]
     Active Substance: HYDROXYZINE HYDROCHLORIDE
     Indication: Product used for unknown indication
     Dosage: 10 MG/5 ML; 38 MG 0.6 MG/KG; Q6H PRN
     Route: 065
  30. EMLA [Concomitant]
     Active Substance: LIDOCAINE\PRILOCAINE
     Indication: Product used for unknown indication
     Dosage: PRN
     Route: 065
  31. CYTARABINE [Concomitant]
     Active Substance: CYTARABINE
     Indication: Product used for unknown indication
     Dosage: UNK
     Route: 065
     Dates: start: 20220119
  32. CALCIUM\VITAMIN D [Concomitant]
     Active Substance: CALCIUM\VITAMIN D
     Indication: Calcium deficiency
     Dosage: 1 DOSAGE FORM, QD, 30 DAYS
     Route: 048
  33. SENNA [Concomitant]
     Active Substance: SENNA LEAF\SENNOSIDES\SENNOSIDES A AND B
     Indication: Constipation
     Dosage: 2 DOSAGE FORM, BID
     Route: 048
  34. DEXTROSE\SODIUM CHLORIDE [Concomitant]
     Active Substance: DEXTROSE\SODIUM CHLORIDE
     Indication: Product used for unknown indication
     Dosage: 3 ML/HR, LAST RATE: 0 ML/HR (02/03/22 0449)
     Route: 065
  35. DEXTROSE\SODIUM CHLORIDE [Concomitant]
     Active Substance: DEXTROSE\SODIUM CHLORIDE
     Dosage: 100ML/HR
     Route: 042

REACTIONS (29)
  - Opportunistic infection [Unknown]
  - Mental status changes [Not Recovered/Not Resolved]
  - Seizure [Recovered/Resolved]
  - Unresponsive to stimuli [Unknown]
  - Neurotoxicity [Unknown]
  - Urinary retention [Unknown]
  - Bradycardia [Unknown]
  - Cytokine release syndrome [Unknown]
  - Hypoxia [Unknown]
  - Upper airway obstruction [Unknown]
  - Intracranial pressure increased [Unknown]
  - Inflammation [Unknown]
  - Neurological decompensation [Unknown]
  - Eye disorder [Unknown]
  - Tremor [Unknown]
  - Vision blurred [Unknown]
  - Fatigue [Unknown]
  - Muscular weakness [Unknown]
  - Anal incontinence [Unknown]
  - Urinary incontinence [Unknown]
  - Headache [Unknown]
  - Visual impairment [Unknown]
  - Appetite disorder [Unknown]
  - Reflexes abnormal [Unknown]
  - Dry skin [Unknown]
  - Cranial nerve disorder [Unknown]
  - Sensory loss [Unknown]
  - Coordination abnormal [Unknown]
  - Gait disturbance [Unknown]

NARRATIVE: CASE EVENT DATE: 20220122
